FAERS Safety Report 10719706 (Version 3)
Quarter: 2015Q2

REPORT INFORMATION
  Report Type: Report from Study
  Country: US (occurrence: US)
  Receive Date: 20150119
  Receipt Date: 20150504
  Transmission Date: 20150821
  Serious: Yes (Hospitalization)
  Sender: FDA-Public Use
  Company Number: US-BIOGENIDEC-2012BI025231

PATIENT
  Age: 26 Year
  Sex: Male

DRUGS (2)
  1. AVONEX [Suspect]
     Active Substance: INTERFERON BETA-1A
     Indication: MULTIPLE SCLEROSIS
     Route: 030
     Dates: start: 20100506, end: 20100901
  2. AVONEX [Suspect]
     Active Substance: INTERFERON BETA-1A
     Indication: MULTIPLE SCLEROSIS
     Route: 030
     Dates: start: 20100405

REACTIONS (18)
  - Seizure [Recovered/Resolved]
  - Angina pectoris [Recovered/Resolved]
  - Feeling hot [Recovered/Resolved]
  - Delirium [Recovered/Resolved]
  - Multiple sclerosis [Unknown]
  - Hypertension [Recovered/Resolved]
  - Pyrexia [Recovered/Resolved]
  - Road traffic accident [Recovered/Resolved]
  - Diabetes mellitus [Recovered/Resolved]
  - Mood swings [Unknown]
  - Dehydration [Recovered/Resolved]
  - Ataxia [Recovered/Resolved]
  - Depression [Recovered/Resolved]
  - Discomfort [Unknown]
  - Pain in extremity [Recovered/Resolved]
  - Headache [Recovered/Resolved]
  - Stress [Recovered/Resolved]
  - Suicidal ideation [Recovered/Resolved]

NARRATIVE: CASE EVENT DATE: 2010
